FAERS Safety Report 19784086 (Version 1)
Quarter: 2021Q3

REPORT INFORMATION
  Report Type: Report from Study
  Country: US (occurrence: US)
  Receive Date: 20210903
  Receipt Date: 20210903
  Transmission Date: 20211014
  Serious: Yes (Hospitalization, Other)
  Sender: FDA-Public Use
  Company Number: US-SA-2021SA288623

PATIENT
  Age: 56 Year
  Sex: Male

DRUGS (1)
  1. TERIFLUNOMIDE. [Suspect]
     Active Substance: TERIFLUNOMIDE
     Indication: MULTIPLE SCLEROSIS
     Dosage: 14 MG, QD
     Route: 048
     Dates: start: 20200601

REACTIONS (7)
  - Haemorrhage intracranial [Unknown]
  - Skin laceration [Unknown]
  - Fall [Unknown]
  - Epistaxis [Recovering/Resolving]
  - Accident [Recovering/Resolving]
  - Haemorrhage [Recovering/Resolving]
  - Facial bones fracture [Unknown]
